FAERS Safety Report 15591013 (Version 1)
Quarter: 2018Q4

REPORT INFORMATION
  Report Type: Spontaneous
  Country: US (occurrence: US)
  Receive Date: 20181107
  Receipt Date: 20181107
  Transmission Date: 20190205
  Serious: Yes (Other)
  Sender: FDA-Public Use
  Company Number: US-GLAXOSMITHKLINE-US2018GSK196642

PATIENT
  Age: 61 Year
  Sex: Female

DRUGS (2)
  1. FLOLAN DILUENT PH 12 [Suspect]
     Active Substance: GLYCINE\MANNITOL\SODIUM CHLORIDE
     Indication: PULMONARY ARTERIAL HYPERTENSION
     Dosage: UNK, CO
     Route: 042
     Dates: start: 20171006
  2. FLOLAN [Suspect]
     Active Substance: EPOPROSTENOL SODIUM
     Indication: PULMONARY ARTERIAL HYPERTENSION
     Dosage: 49NG/KG/MIN
     Route: 042
     Dates: start: 20171006

REACTIONS (6)
  - Complication associated with device [Recovered/Resolved]
  - Headache [Unknown]
  - Pain [Unknown]
  - Dyspnoea [Unknown]
  - Product dose omission [Recovered/Resolved]
  - Oxygen therapy [Unknown]

NARRATIVE: CASE EVENT DATE: 201810
